FAERS Safety Report 7770574-1 (Version None)
Quarter: 2011Q3

REPORT INFORMATION
  Report Type: 
  Country: None (occurrence: None)
  Receive Date: 20110922
  Receipt Date: 20110914
  Transmission Date: 20111222
  Serious: Yes (Other)
  Sender: FDA-Public Use
  Company Number: PHHY2011JP58972

PATIENT
  Age: 67 Year
  Sex: Male

DRUGS (1)
  1. VOLTAREN [Suspect]
     Dosage: UNK UKN, UNK
     Route: 048
     Dates: start: 20100201

REACTIONS (3)
  - VISION BLURRED [None]
  - DIPLOPIA [None]
  - CATARACT [None]
